FAERS Safety Report 6874789-6 (Version None)
Quarter: 2010Q3

REPORT INFORMATION
  Report Type: 
  Country: None (occurrence: None)
  Receive Date: 20100723
  Receipt Date: 20100721
  Transmission Date: 20110219
  Serious: Yes (Disabling)
  Sender: FDA-Public Use
  Company Number: 1022556-2010-00049

PATIENT
  Age: 47 Year
  Sex: Female
  Weight: 65.7716 kg

DRUGS (1)
  1. ICY HOT CHILL STICK 1.75 OZ. [Suspect]
     Indication: MYALGIA
     Dosage: TOPICAL
     Route: 061

REACTIONS (5)
  - APPLICATION SITE PAIN [None]
  - DRY SKIN [None]
  - ERYTHEMA [None]
  - SKIN DEPIGMENTATION [None]
  - SKIN EXFOLIATION [None]
